FAERS Safety Report 5737630-0 (Version None)
Quarter: 2008Q2

REPORT INFORMATION
  Report Type: 
  Country: None (occurrence: None)
  Receive Date: 20080512
  Receipt Date: 20080512
  Transmission Date: 20081010
  Serious: Yes (Other)
  Sender: FDA-Public Use
  Company Number: None

PATIENT
  Age: 42 Year
  Sex: Female

DRUGS (8)
  1. BYETTA [Suspect]
     Indication: TYPE 2 DIABETES MELLITUS
     Dosage: SUBCUTANEOUS; 10.0
     Dates: start: 20071207, end: 20080207
  2. PIOGLITAZONE [Concomitant]
  3. FLUOXETINE HCL [Concomitant]
  4. GABAPENTIN [Concomitant]
  5. ASPIRIN [Concomitant]
  6. VYTORIN [Concomitant]
  7. METFORMIN HCL [Concomitant]
  8. LOSARTAN POTASSIUM [Concomitant]

REACTIONS (4)
  - ABDOMINAL PAIN [None]
  - NAUSEA [None]
  - RENAL PAIN [None]
  - VOMITING [None]
